FAERS Safety Report 12913983 (Version 2)
Quarter: 2016Q4

REPORT INFORMATION
  Report Type: Spontaneous
  Country: US (occurrence: US)
  Receive Date: 20161104
  Receipt Date: 20161106
  Transmission Date: 20170207
  Serious: Yes (Hospitalization)
  Sender: FDA-Public Use
  Company Number: US-RELYPSA-RLY2016002922

PATIENT
  Age: 67 Year
  Sex: Male

DRUGS (14)
  1. VELTASSA [Suspect]
     Active Substance: PATIROMER
     Indication: HYPERKALAEMIA
     Dosage: 8.4 G, QD
     Route: 048
  2. ACETAMINOPHEN. [Concomitant]
     Active Substance: ACETAMINOPHEN
  3. ALLEGRA ALLERGY [Concomitant]
     Active Substance: FEXOFENADINE HYDROCHLORIDE
  4. ATOVAQUONE. [Concomitant]
     Active Substance: ATOVAQUONE
  5. CALCITRIOL. [Concomitant]
     Active Substance: CALCITRIOL
  6. ULORIC [Concomitant]
     Active Substance: FEBUXOSTAT
  7. ACYCLOVIR. [Concomitant]
     Active Substance: ACYCLOVIR
  8. MIDODRINE HCL [Concomitant]
     Active Substance: MIDODRINE HYDROCHLORIDE
  9. ANDROGEL [Concomitant]
     Active Substance: TESTOSTERONE
  10. CABERGOLINE. [Concomitant]
     Active Substance: CABERGOLINE
  11. DEXAMETHASONE SODIUM PHOSPHATE. [Concomitant]
     Active Substance: DEXAMETHASONE SODIUM PHOSPHATE
  12. LORAZEPAM. [Concomitant]
     Active Substance: LORAZEPAM
  13. SYNTHROID [Concomitant]
     Active Substance: LEVOTHYROXINE SODIUM
  14. ASPIRIN. [Concomitant]
     Active Substance: ASPIRIN

REACTIONS (1)
  - Diarrhoea [Unknown]

NARRATIVE: CASE EVENT DATE: 20161003
